FAERS Safety Report 9728372 (Version 1)
Quarter: 2013Q4

REPORT INFORMATION
  Report Type: Spontaneous
  Country: US (occurrence: None)
  Receive Date: 20131203
  Receipt Date: 20131203
  Transmission Date: 20140711
  Serious: Yes (Other)
  Sender: FDA-Public Use
  Company Number: None

PATIENT
  Age: 71 Year
  Sex: Female
  Weight: 91.63 kg

DRUGS (1)
  1. GENERIC DYAZIDE [Suspect]
     Indication: HYPERTENSION
     Dosage: 375/25 MG, TPO QD

REACTIONS (2)
  - Hypertension [None]
  - Epistaxis [None]
